FAERS Safety Report 8470477 (Version 2)
Quarter: 2013Q2

REPORT INFORMATION
  Report Type: Report from Study
  Country: US (occurrence: US)
  Receive Date: 20120321
  Receipt Date: 20130612
  Transmission Date: 20140414
  Serious: Yes (Death, Hospitalization)
  Sender: FDA-Public Use
  Company Number: US-ACTELION-A-US2011-52135

PATIENT
  Age: 59 Year
  Sex: Female

DRUGS (10)
  1. VELETRI [Suspect]
     Indication: PULMONARY ARTERIAL HYPERTENSION
     Dosage: 29 NG/KG, PER MIN
     Route: 042
     Dates: start: 20101224
  2. VELETRI [Suspect]
     Dosage: 32 NG/KG, PER MIN
     Route: 042
  3. VELETRI [Suspect]
     Dosage: 39 NG/KG, PER MIN
     Route: 042
     Dates: end: 20120312
  4. LETAIRIS [Suspect]
     Route: 048
  5. BUMEX [Concomitant]
     Dosage: UNK
     Dates: start: 20100226
  6. MIDODRINE [Concomitant]
     Dosage: UNK
     Dates: start: 20110215
  7. ARANESP [Concomitant]
     Dosage: UNK
     Dates: start: 20110215
  8. TADALAFIL [Concomitant]
     Dosage: UNK
     Dates: start: 20110726
  9. URSODIOL [Concomitant]
     Dosage: UNK
     Dates: start: 20091210
  10. METOLAZONE [Concomitant]
     Dosage: UNK
     Dates: start: 20110419

REACTIONS (18)
  - Death [Fatal]
  - Right ventricular failure [Recovered/Resolved with Sequelae]
  - Acute respiratory failure [Recovered/Resolved with Sequelae]
  - Fluid overload [Recovered/Resolved]
  - Oedema peripheral [Recovered/Resolved]
  - Pericardial effusion [Recovered/Resolved]
  - Condition aggravated [Recovered/Resolved]
  - Hyperdynamic left ventricle [Recovered/Resolved]
  - Right atrial dilatation [Recovered/Resolved]
  - Dyspnoea [Recovered/Resolved]
  - Chest discomfort [Recovered/Resolved]
  - Oedema [Recovered/Resolved]
  - Cardiomegaly [Recovered/Resolved]
  - Pulmonary oedema [Recovered/Resolved]
  - Pulmonary artery dilatation [Recovered/Resolved]
  - Dilatation ventricular [Recovered/Resolved]
  - Brain natriuretic peptide increased [Recovered/Resolved]
  - Fluid retention [Recovered/Resolved with Sequelae]
